FAERS Safety Report 19206940 (Version 4)
Quarter: 2024Q3

REPORT INFORMATION
  Report Type: Report from Study
  Country: BR (occurrence: BR)
  Receive Date: 20210503
  Receipt Date: 20240910
  Transmission Date: 20241017
  Serious: Yes (Hospitalization, Other)
  Sender: TAKEDA
  Company Number: BR-SHIRE-BR201842918AA

PATIENT
  Sex: Male

DRUGS (5)
  1. ANTI-INHIBITOR COAGULANT COMPLEX [Suspect]
     Active Substance: ANTI-INHIBITOR COAGULANT COMPLEX
     Indication: Factor VIII deficiency
     Dosage: UNK UNK, 2/WEEK
     Route: 065
  2. ANTI-INHIBITOR COAGULANT COMPLEX [Suspect]
     Active Substance: ANTI-INHIBITOR COAGULANT COMPLEX
     Dosage: 1.25 INTERNATIONAL UNIT, 4/WEEK
     Route: 065
     Dates: start: 20161201
  3. HEMO-8R [Suspect]
     Active Substance: ANTIHEMOPHILIC FACTOR, HUMAN RECOMBINANT
     Indication: Factor VIII deficiency
     Dosage: 750 INTERNATIONAL UNIT, 3/WEEK
     Route: 042
  4. HEMO-8R [Suspect]
     Active Substance: ANTIHEMOPHILIC FACTOR, HUMAN RECOMBINANT
     Dosage: 1000 INTERNATIONAL UNIT, 3/WEEK
     Route: 042
     Dates: start: 20170601
  5. HEMO-8R [Suspect]
     Active Substance: ANTIHEMOPHILIC FACTOR, HUMAN RECOMBINANT
     Dosage: 1250 INTERNATIONAL UNIT, 3/WEEK
     Route: 065

REACTIONS (19)
  - Internal haemorrhage [Recovered/Resolved]
  - Drug ineffective [Recovered/Resolved]
  - Anti factor VIII antibody increased [Recovered/Resolved]
  - Haemorrhage [Unknown]
  - Head injury [Unknown]
  - Contusion [Unknown]
  - Cerebral thrombosis [Recovering/Resolving]
  - Postoperative thrombosis [Recovered/Resolved]
  - Dyspnoea [Unknown]
  - Fall [Unknown]
  - Nervousness [Unknown]
  - Agitation [Unknown]
  - Swelling [Unknown]
  - Weight decreased [Unknown]
  - Attention deficit hyperactivity disorder [Unknown]
  - Illness [Unknown]
  - Dermatitis atopic [Unknown]
  - Poor venous access [Unknown]
  - Product dose omission issue [Unknown]
